FAERS Safety Report 14342181 (Version 1)
Quarter: 2018Q1

REPORT INFORMATION
  Report Type: Spontaneous
  Country: US (occurrence: US)
  Receive Date: 20180102
  Receipt Date: 20180102
  Transmission Date: 20180509
  Serious: No
  Sender: FDA-Public Use
  Company Number: US-TEVA-771359ACC

PATIENT

DRUGS (2)
  1. DULOXETINE DR [Suspect]
     Active Substance: DULOXETINE
     Route: 065
     Dates: end: 20170508
  2. DULOXETINE DR [Suspect]
     Active Substance: DULOXETINE
     Route: 065
     Dates: start: 2013

REACTIONS (4)
  - Paraesthesia [Unknown]
  - Malaise [Unknown]
  - Dizziness [Unknown]
  - Intentional product misuse [Unknown]

NARRATIVE: CASE EVENT DATE: 20170511
